FAERS Safety Report 7406357-1 (Version None)
Quarter: 2011Q2

REPORT INFORMATION
  Report Type: 
  Country: None (occurrence: None)
  Receive Date: 20110411
  Receipt Date: 20110406
  Transmission Date: 20111010
  Serious: Yes (Death)
  Sender: FDA-Public Use
  Company Number: JP-PFIZER INC-2011075710

PATIENT
  Age: 80 Year
  Sex: Female

DRUGS (2)
  1. CEFTRIAXONE [Suspect]
     Dosage: 1G DAILY
  2. AMPICILLIN SODIUM AND SULBACTAM SODIUM [Suspect]
     Dosage: 6 G DAILY

REACTIONS (2)
  - HEPATITIS FULMINANT [None]
  - LIVER DISORDER [None]
